FAERS Safety Report 5642697-4 (Version None)
Quarter: 2008Q1

REPORT INFORMATION
  Report Type: 
  Country: None (occurrence: None)
  Receive Date: 20080227
  Receipt Date: 20080227
  Transmission Date: 20080703
  Serious: Yes (Hospitalization)
  Sender: FDA-Public Use
  Company Number: None

PATIENT
  Sex: Female

DRUGS (7)
  1. DIOVAN [Suspect]
     Indication: HYPERTENSION
     Dosage: (THERAPY DATES: PRIOR TO ADMISSION)
  2. COREG [Suspect]
     Indication: HYPERTENSION
     Dosage: (THERAPY DATES: PRIOR TO ADMISSION)
  3. FELODIPINE [Suspect]
     Indication: HYPERTENSION
     Dosage: (THERAPY DATES: PRIOR TO ADMISSION)
  4. AMOXICILLIN [Concomitant]
  5. DARVOCET [Concomitant]
  6. PLAVIX [Concomitant]
  7. SEROQUEL [Concomitant]

REACTIONS (3)
  - BLOOD PRESSURE DECREASED [None]
  - SYNCOPE [None]
  - VOMITING [None]
